FAERS Safety Report 6473157-9 (Version None)
Quarter: 2009Q4

REPORT INFORMATION
  Report Type: 
  Country: None (occurrence: None)
  Receive Date: 20091204
  Receipt Date: 20081104
  Transmission Date: 20100525
  Serious: Yes (Hospitalization)
  Sender: FDA-Public Use
  Company Number: US-ELI_LILLY_AND_COMPANY-US200808003219

PATIENT
  Sex: Female
  Weight: 54.875 kg

DRUGS (13)
  1. TERIPARATIDE [Suspect]
     Indication: OSTEOPOROSIS
     Dosage: 20 UG, DAILY (1/D)
     Route: 058
     Dates: start: 20060922
  2. REQUIP [Concomitant]
     Indication: POOR QUALITY SLEEP
     Dosage: 0.5 MEQ, DAILY (1/D)
  3. PREDNISONE [Concomitant]
     Indication: ARTERITIS
     Dosage: 20 MG, DAILY (1/D)
  4. LEVOTHYROXINE SODIUM [Concomitant]
     Indication: HYPOTHYROIDISM
     Dosage: 0.05 MG, DAILY (1/D)
  5. MULTI-VITAMIN [Concomitant]
     Indication: VITAMIN SUPPLEMENTATION
     Dosage: UNK, DAILY (1/D)
  6. METHOTREXATE [Concomitant]
     Dosage: 2.5 MG, WEEKLY (1/W)
  7. LASIX [Concomitant]
     Dosage: 20 MG, DAILY (1/D)
  8. ATENOLOL [Concomitant]
     Dosage: 25 MG, DAILY (1/D)
  9. CALCIUM [Concomitant]
     Dosage: 500 MG, DAILY (1/D)
  10. FOLIC ACID [Concomitant]
     Dosage: 1 MG, DAILY (1/D)
  11. HYDROCORTISONE [Concomitant]
     Dosage: 2.5 %, UNK
     Route: 061
  12. PRILOSEC [Concomitant]
     Dosage: 20 MG, DAILY (1/D)
  13. COUMADIN [Concomitant]
     Indication: ATRIAL FIBRILLATION
     Dates: start: 20070312

REACTIONS (2)
  - FALL [None]
  - STERNAL FRACTURE [None]
